FAERS Safety Report 4402740-7 (Version None)
Quarter: 2004Q3

REPORT INFORMATION
  Report Type: 
  Country: None (occurrence: None)
  Receive Date: 20040721
  Receipt Date: 20040126
  Transmission Date: 20050211
  Serious: No
  Sender: FDA-Public Use
  Company Number: US-BRISTOL-MYERS SQUIBB COMPANY-12487070

PATIENT
  Age: 59 Year
  Sex: Female
  Weight: 86 kg

DRUGS (5)
  1. ESTRACE [Suspect]
     Indication: HOT FLUSH
     Dosage: ALSO REPORTED 2 MG DAILY.
     Route: 048
     Dates: start: 20031001, end: 20040114
  2. COD LIVER OIL [Concomitant]
  3. VITAMIN E [Concomitant]
  4. VITAMIN B6 [Concomitant]
  5. VITAMIN C [Concomitant]

REACTIONS (1)
  - ALOPECIA [None]
